FAERS Safety Report 14012472 (Version 1)
Quarter: 2017Q3

REPORT INFORMATION
  Report Type: Spontaneous
  Country: CA (occurrence: CA)
  Receive Date: 20170926
  Receipt Date: 20170926
  Transmission Date: 20171128
  Serious: Yes (Other)
  Sender: FDA-Public Use
  Company Number: CA-PFIZER INC-2017409017

PATIENT
  Age: 52 Year
  Sex: Female

DRUGS (6)
  1. CELEBREX [Suspect]
     Active Substance: CELECOXIB
     Dosage: UNK
     Dates: start: 2006
  2. VIOXX [Suspect]
     Active Substance: ROFECOXIB
     Dosage: UNK
     Dates: end: 2004
  3. CELEBREX [Suspect]
     Active Substance: CELECOXIB
     Dosage: UNK
     Dates: start: 2003
  4. VIOXX [Suspect]
     Active Substance: ROFECOXIB
     Dosage: 25 MG, ONCE A DAY
     Dates: start: 20010531
  5. VIOXX [Suspect]
     Active Substance: ROFECOXIB
     Dosage: 25 MG, ONCE A DAY
     Dates: start: 20020326
  6. VIOXX [Suspect]
     Active Substance: ROFECOXIB
     Indication: INFLAMMATION
     Dosage: UNK
     Dates: start: 199801

REACTIONS (1)
  - Ischaemic stroke [Unknown]
